FAERS Safety Report 4623110-2 (Version None)
Quarter: 2005Q1

REPORT INFORMATION
  Report Type: 
  Country: None (occurrence: None)
  Receive Date: 20050328
  Receipt Date: 20050328
  Transmission Date: 20050727
  Serious: Yes (Other)
  Sender: FDA-Public Use
  Company Number: None

PATIENT
  Age: 50 Year
  Sex: Male
  Weight: 98.4 kg

DRUGS (1)
  1. CAPTOPRIL [Suspect]
     Indication: HYPERTENSION
     Dosage: 12.5 MG    BID    ORAL
     Route: 048
     Dates: start: 20050323, end: 20050325

REACTIONS (2)
  - NEUTROPHIL COUNT DECREASED [None]
  - WHITE BLOOD CELL COUNT DECREASED [None]
